FAERS Safety Report 4466295-3 (Version None)
Quarter: 2004Q3

REPORT INFORMATION
  Report Type: 
  Country: None (occurrence: None)
  Receive Date: 20040930
  Receipt Date: 20040923
  Transmission Date: 20050211
  Serious: Yes (Hospitalization)
  Sender: FDA-Public Use
  Company Number: 2004UW19806

PATIENT
  Age: 62 Year
  Sex: Male

DRUGS (5)
  1. IRESSA [Suspect]
     Indication: LIP AND/OR ORAL CAVITY CANCER
     Dosage: 250 MG DAILY PO
     Route: 048
     Dates: end: 20040920
  2. IRESSA [Suspect]
     Indication: LIP AND/OR ORAL CAVITY CANCER
     Dates: start: 20040921
  3. CISPLATIN [Suspect]
     Indication: LIP AND/OR ORAL CAVITY CANCER
     Dosage: 6 WEEKLY COURSES
  4. RADIATION THERAPY [Suspect]
     Indication: LIP AND/OR ORAL CAVITY CANCER
     Dosage: 50.4 GY
  5. ZOFRAN [Concomitant]

REACTIONS (11)
  - DEHYDRATION [None]
  - DIABETES MELLITUS [None]
  - HAEMOPTYSIS [None]
  - HYPERBILIRUBINAEMIA [None]
  - HYPOKALAEMIA [None]
  - HYPOMAGNESAEMIA [None]
  - HYPONATRAEMIA [None]
  - NAUSEA [None]
  - PYREXIA [None]
  - RESPIRATORY RATE INCREASED [None]
  - VOMITING [None]
